FAERS Safety Report 13725520 (Version 1)
Quarter: 2017Q3

REPORT INFORMATION
  Report Type: Spontaneous
  Country: US (occurrence: US)
  Receive Date: 20170706
  Receipt Date: 20170706
  Transmission Date: 20171127
  Serious: Yes (Disabling)
  Sender: FDA-Public Use
  Company Number: None

PATIENT
  Age: 50 Year
  Sex: Female
  Weight: 54 kg

DRUGS (6)
  1. FIBER CAPSULE [Concomitant]
  2. VITAMIN D [Concomitant]
     Active Substance: CHOLECALCIFEROL
  3. CIPROFLOXACIN. [Suspect]
     Active Substance: CIPROFLOXACIN
     Indication: MASTITIS
     Dosage: ?          OTHER STRENGTH:MG;QUANTITY:28 TABLET(S);?EVERY 12 HOURS
     Route: 048
     Dates: start: 20170615, end: 20170627
  4. B COMPLEX VITAMIN [Concomitant]
  5. ZYVOX [Concomitant]
     Active Substance: LINEZOLID
  6. CENTRUM MULTIVITAMIN [Concomitant]

REACTIONS (2)
  - Pain in extremity [None]
  - Arthralgia [None]

NARRATIVE: CASE EVENT DATE: 20170622
